FAERS Safety Report 9211076 (Version 1)
Quarter: 2013Q2

REPORT INFORMATION
  Report Type: Report from Study
  Country: US (occurrence: US)
  Receive Date: 20130404
  Receipt Date: 20130404
  Transmission Date: 20140414
  Serious: Yes (Hospitalization)
  Sender: FDA-Public Use
  Company Number: US-US-EMD SERONO, INC.-7197044

PATIENT
  Age: 32 Year
  Sex: Female

DRUGS (2)
  1. REBIF [Suspect]
     Indication: PRODUCT USED FOR UNKNOWN INDICATION
     Route: 058
     Dates: start: 20120926
  2. REBIF [Suspect]
     Route: 058
     Dates: start: 201301

REACTIONS (8)
  - Tremor [Unknown]
  - Syncope [Unknown]
  - Vaginal haemorrhage [Not Recovered/Not Resolved]
  - Epistaxis [Not Recovered/Not Resolved]
  - Dysarthria [Unknown]
  - Feeling cold [Unknown]
  - Influenza like illness [Unknown]
  - Headache [Unknown]
